FAERS Safety Report 5095164-3 (Version None)
Quarter: 2006Q3

REPORT INFORMATION
  Report Type: 
  Country: None (occurrence: None)
  Receive Date: 20060901
  Receipt Date: 20060821
  Transmission Date: 20061208
  Serious: Yes (Hospitalization)
  Sender: FDA-Public Use
  Company Number: 2006GB01455

PATIENT
  Sex: Male

DRUGS (15)
  1. MEROPENEM [Suspect]
     Indication: SEPSIS
     Route: 042
  2. MEROPENEM [Suspect]
     Indication: URINARY TRACT INFECTION
     Route: 042
  3. DEXAMETHASONE [Concomitant]
     Indication: URINARY TRACT INFECTION
     Dates: start: 20060501
  4. INSULIN GLARGINE [Concomitant]
  5. ISONIAZID [Concomitant]
     Indication: TUBERCULOSIS
     Dates: start: 20060501
  6. LACTULOSE [Concomitant]
  7. LANSOPRAZOLE [Concomitant]
     Indication: PEPTIC ULCER
     Route: 048
  8. MOVICOL [Concomitant]
  9. NOVORAPID [Concomitant]
  10. PYRAZINAMIDE [Concomitant]
     Indication: TUBERCULOSIS
     Dates: start: 20060501
  11. PYRIDOXINE HCL [Concomitant]
     Indication: NEUROPATHY PERIPHERAL
     Route: 048
     Dates: start: 20060501
  12. RIFAMPICIN [Concomitant]
     Indication: MENINGITIS
     Route: 048
     Dates: start: 20060501
  13. RIFAMPICIN [Concomitant]
     Indication: TUBERCULOSIS
     Route: 048
     Dates: start: 20060501
  14. SENNA [Concomitant]
     Indication: CONSTIPATION
     Route: 048
  15. WARFARIN [Concomitant]
     Indication: PORTAL VEIN THROMBOSIS
     Route: 048

REACTIONS (1)
  - RASH MACULAR [None]
